FAERS Safety Report 14597667 (Version 3)
Quarter: 2018Q2

REPORT INFORMATION
  Report Type: Report from Study
  Country: US (occurrence: US)
  Receive Date: 20180305
  Receipt Date: 20180525
  Transmission Date: 20180711
  Serious: Yes (Hospitalization, Other)
  Sender: FDA-Public Use
  Company Number: US-GILEAD-2018-0321585

PATIENT
  Age: 79 Year
  Sex: Male

DRUGS (1)
  1. AMBRISENTAN [Suspect]
     Active Substance: AMBRISENTAN
     Indication: PULMONARY ARTERIAL HYPERTENSION
     Dosage: 5 MG, QD
     Route: 065
     Dates: start: 20151210

REACTIONS (10)
  - Fluid retention [Unknown]
  - Cerebrovascular accident [Unknown]
  - Weight decreased [Unknown]
  - Sepsis [Unknown]
  - Cardiac failure congestive [Not Recovered/Not Resolved]
  - Colon operation [Unknown]
  - Pneumonia [Unknown]
  - Intentional product use issue [Not Recovered/Not Resolved]
  - Weight increased [Unknown]
  - Intra-abdominal fluid collection [Not Recovered/Not Resolved]

NARRATIVE: CASE EVENT DATE: 201709
